FAERS Safety Report 7795880-6 (Version None)
Quarter: 2011Q4

REPORT INFORMATION
  Report Type: 
  Country: None (occurrence: None)
  Receive Date: 20111004
  Receipt Date: 20110921
  Transmission Date: 20120403
  Serious: Yes (Hospitalization)
  Sender: FDA-Public Use
  Company Number: JP-ASTRAZENECA-2011SE53222

PATIENT
  Age: 67 Year
  Sex: Male

DRUGS (30)
  1. RISPERDAL [Concomitant]
  2. NOREPINEPHRINE BITARTRATE [Concomitant]
  3. DOBUPUM [Concomitant]
  4. AMIODARONE HCL [Suspect]
     Indication: VENTRICULAR TACHYCARDIA
     Route: 065
     Dates: start: 20110805, end: 20110814
  5. LIPITOR [Concomitant]
     Route: 048
  6. VERAPAMIL HCL [Concomitant]
  7. HUMULIN R [Concomitant]
  8. PITRESSIN [Suspect]
  9. OMEPRAZOLE [Suspect]
  10. CALCIUM CARBONATE [Concomitant]
  11. PRECEDEX [Concomitant]
  12. ONOACT [Suspect]
  13. LASOPRAN OD [Concomitant]
     Route: 048
  14. RABEPRAZOLE SODIUM [Concomitant]
  15. ALLOID G [Concomitant]
  16. ADEHL [Concomitant]
  17. POTASSIUM CHLORIDE [Concomitant]
  18. KAYTWO N [Concomitant]
  19. HEPARIN SODIUM [Concomitant]
  20. MEROPENEM [Suspect]
     Indication: INFECTION
     Route: 042
     Dates: start: 20110814, end: 20110817
  21. YOKU-KAN-SAN [Concomitant]
  22. PICILLIBACTA [Suspect]
     Indication: PNEUMONIA
     Route: 042
     Dates: start: 20110806, end: 20110809
  23. NOVORAPID [Concomitant]
  24. AMIODARONE HCL [Suspect]
     Indication: PROPHYLAXIS
     Route: 065
     Dates: start: 20110805, end: 20110814
  25. ASPIRIN [Concomitant]
     Route: 048
  26. HANP [Concomitant]
  27. FUROSEMIDE [Concomitant]
  28. FENTANYL [Concomitant]
  29. PROPOFOL [Concomitant]
  30. BUMINATE [Concomitant]

REACTIONS (1)
  - INTERSTITIAL LUNG DISEASE [None]
